FAERS Safety Report 24564856 (Version 1)
Quarter: 2024Q4

REPORT INFORMATION
  Report Type: Spontaneous
  Country: AU (occurrence: AU)
  Receive Date: 20241030
  Receipt Date: 20241030
  Transmission Date: 20250115
  Serious: Yes (Other)
  Sender: CIPLA
  Company Number: AU-CIPLA LTD.-2024AU12221

PATIENT

DRUGS (1)
  1. RIVAROXABAN [Suspect]
     Active Substance: RIVAROXABAN
     Indication: Product used for unknown indication
     Dosage: UNK (DOSAGE FORM: FILM-COATED TABLET)
     Route: 065
     Dates: start: 20240904, end: 20240907

REACTIONS (10)
  - Heart rate increased [Unknown]
  - Myalgia [Unknown]
  - Hot flush [Unknown]
  - Dysgeusia [Unknown]
  - Agitation [Unknown]
  - Bowel movement irregularity [Unknown]
  - Hyperhidrosis [Unknown]
  - Dizziness [Unknown]
  - Pain in extremity [Unknown]
  - Malaise [Unknown]

NARRATIVE: CASE EVENT DATE: 20240904
